FAERS Safety Report 14111742 (Version 2)
Quarter: 2017Q4

REPORT INFORMATION
  Report Type: Spontaneous
  Country: FR (occurrence: FR)
  Receive Date: 20171020
  Receipt Date: 20171026
  Transmission Date: 20180321
  Serious: Yes (Death)
  Sender: FDA-Public Use
  Company Number: FR-FERRINGPH-2017FE04861

PATIENT

DRUGS (1)
  1. FIRMAGON [Suspect]
     Active Substance: DEGARELIX ACETATE
     Indication: PROSTATE CANCER
     Dosage: 240 MG, ONCE/SINGLE
     Route: 065
     Dates: start: 201709, end: 201709

REACTIONS (2)
  - Prostate cancer [Fatal]
  - Intercepted drug prescribing error [Unknown]

NARRATIVE: CASE EVENT DATE: 20171013
